FAERS Safety Report 7593048-X (Version None)
Quarter: 2011Q3

REPORT INFORMATION
  Report Type: 
  Country: None (occurrence: None)
  Receive Date: 20110706
  Receipt Date: 20110629
  Transmission Date: 20111222
  Serious: Yes (Other)
  Sender: FDA-Public Use
  Company Number: US-BAYER-2011-050102

PATIENT
  Age: 49 Year
  Sex: Male

DRUGS (1)
  1. SORAFENIB (RAF KINASE INHIBITOR) [Suspect]
     Indication: HEPATIC NEOPLASM MALIGNANT
     Dosage: 400 MG, BID
     Route: 048
     Dates: start: 20110528

REACTIONS (7)
  - BONE PAIN [None]
  - MUSCULOSKELETAL PAIN [None]
  - FATIGUE [None]
  - MUSCULOSKELETAL CHEST PAIN [None]
  - THROMBOSIS [None]
  - ARTHRALGIA [None]
  - CELLULITIS [None]
